FAERS Safety Report 9253727 (Version 2)
Quarter: 2014Q1

REPORT INFORMATION
  Report Type: Spontaneous
  Country: US (occurrence: US)
  Receive Date: 20130425
  Receipt Date: 20140120
  Transmission Date: 20141002
  Serious: No
  Sender: FDA-Public Use
  Company Number: US-ASTRAZENECA-2013SE27596

PATIENT
  Age: 17662 Day
  Sex: Female
  Weight: 83 kg

DRUGS (25)
  1. NEXIUM [Suspect]
     Indication: GASTROOESOPHAGEAL REFLUX DISEASE
     Route: 048
     Dates: start: 20050507
  2. NEXIUM [Suspect]
     Indication: GASTROOESOPHAGEAL REFLUX DISEASE
     Route: 048
     Dates: start: 200905
  3. PROTONIX [Concomitant]
     Indication: GASTROOESOPHAGEAL REFLUX DISEASE
     Dates: start: 20021109, end: 20040601
  4. PREVACID [Concomitant]
     Indication: GASTROOESOPHAGEAL REFLUX DISEASE
     Dates: start: 20020314, end: 200211
  5. PEPTO-BISMOL [Concomitant]
  6. MILK OF MAGNESIA [Concomitant]
  7. TOPAMAX [Concomitant]
  8. LISINOPRIL [Concomitant]
  9. PAROXETINE [Concomitant]
  10. OMEPRAZOLE [Concomitant]
     Dates: start: 20130218
  11. LUNESTA [Concomitant]
  12. XANAX [Concomitant]
  13. SOMA [Concomitant]
  14. ZOMIG [Concomitant]
  15. PHRENILIN FORTE [Concomitant]
  16. MEDROXYPROGESTERONE [Concomitant]
  17. PARAGON FORTE [Concomitant]
  18. AMBIEN [Concomitant]
  19. PREMARIN [Concomitant]
  20. VERAPAMIL [Concomitant]
  21. WELLBUTRIN SR [Concomitant]
  22. ACTONEL [Concomitant]
  23. LEXAPRO [Concomitant]
     Dates: start: 20040813
  24. PRANDIN [Concomitant]
  25. FLEXERIL [Concomitant]

REACTIONS (9)
  - Osteoporosis [Unknown]
  - Bone density decreased [Unknown]
  - Wrist fracture [Unknown]
  - Calcium deficiency [Unknown]
  - Hypertension [Unknown]
  - Anxiety [Unknown]
  - Restlessness [Unknown]
  - Osteopenia [Unknown]
  - Depression [Unknown]
